FAERS Safety Report 16253509 (Version 2)
Quarter: 2019Q2

REPORT INFORMATION
  Report Type: Report from Study
  Country: DZ (occurrence: DZ)
  Receive Date: 20190430
  Receipt Date: 20190501
  Transmission Date: 20190711
  Serious: Yes (Other)
  Sender: FDA-Public Use
  Company Number: DZ-EMD SERONO-9087530

PATIENT
  Age: 47 Year
  Sex: Female

DRUGS (2)
  1. ALTEIS [Concomitant]
     Active Substance: OLMESARTAN MEDOXOMIL
     Indication: PRODUCT USED FOR UNKNOWN INDICATION
  2. REBIF [Suspect]
     Active Substance: INTERFERON BETA-1A
     Indication: MULTIPLE SCLEROSIS
     Route: 058
     Dates: start: 20080301

REACTIONS (7)
  - Hypertonic bladder [Unknown]
  - Skin necrosis [Not Recovered/Not Resolved]
  - Aphthous ulcer [Recovered/Resolved]
  - Drug hypersensitivity [Recovered/Resolved]
  - Vitamin D deficiency [Unknown]
  - Myalgia [Recovered/Resolved]
  - Injection site reaction [Not Recovered/Not Resolved]

NARRATIVE: CASE EVENT DATE: 20140101
